FAERS Safety Report 20331332 (Version 1)
Quarter: 2022Q1

REPORT INFORMATION
  Report Type: Spontaneous
  Country: US (occurrence: None)
  Receive Date: 20220112
  Receipt Date: 20220112
  Transmission Date: 20220423
  Serious: Yes (Disabling)
  Sender: FDA-Public Use
  Company Number: None

PATIENT
  Age: 32 Year
  Sex: Female
  Weight: 127.01 kg

DRUGS (2)
  1. SCOPOLAMINE [Suspect]
     Active Substance: SCOPOLAMINE
     Indication: Dizziness
     Route: 061
     Dates: start: 20190207, end: 20190208
  2. Alprazilam [Concomitant]

REACTIONS (7)
  - Dizziness [None]
  - Gastrointestinal disorder [None]
  - Hypoaesthesia [None]
  - Hiatus hernia [None]
  - Hypophagia [None]
  - Muscle spasms [None]
  - Spinal cord injury lumbar [None]

NARRATIVE: CASE EVENT DATE: 20190208
